FAERS Safety Report 7527769-1 (Version None)
Quarter: 2011Q2

REPORT INFORMATION
  Report Type: 
  Country: None (occurrence: None)
  Receive Date: 20110527
  Receipt Date: 20110512
  Transmission Date: 20111010
  Serious: Yes (Other)
  Sender: FDA-Public Use
  Company Number: DSJ-2011-04716

PATIENT
  Age: 75 Year
  Sex: Female

DRUGS (2)
  1. EPADEL (ETHYL ICOSAPENTATE) (ETHYL ECOSAPENTATE) [Concomitant]
  2. OLMESARTAN MEDOXOMIL [Suspect]
     Indication: ESSENTIAL HYPERTENSION
     Dosage: 5 MG,PER ORAL
     Route: 048
     Dates: start: 20100930, end: 20101215

REACTIONS (1)
  - HYPOTENSION [None]
